FAERS Safety Report 4396050-4 (Version None)
Quarter: 2004Q3

REPORT INFORMATION
  Report Type: 
  Country: None (occurrence: None)
  Receive Date: 20040707
  Receipt Date: 20040624
  Transmission Date: 20050211
  Serious: Yes (Hospitalization)
  Sender: FDA-Public Use
  Company Number: CA-JNJFOC-20040602380

PATIENT
  Age: 78 Year
  Sex: Female
  Weight: 47.1741 kg

DRUGS (6)
  1. TYLENOL W/ CODEINE NO. 3 [Suspect]
     Indication: POST PROCEDURAL PAIN
     Dosage: 3 DOSE (S), IN 1 AS NECESSARY, ORAL
     Route: 048
     Dates: start: 20040606, end: 20040608
  2. THYROID MEDICATION NOS (THYROID HORMONES) [Concomitant]
  3. COREG [Concomitant]
  4. DILANTIN [Concomitant]
  5. LIPITOR [Concomitant]
  6. ACETYLSALICYLIC ACID SRT [Concomitant]

REACTIONS (10)
  - CONFUSIONAL STATE [None]
  - DISTURBANCE IN ATTENTION [None]
  - HALLUCINATIONS, MIXED [None]
  - HEARING IMPAIRED [None]
  - INSOMNIA [None]
  - MEDICATION ERROR [None]
  - MIOSIS [None]
  - NAUSEA [None]
  - OVERDOSE [None]
  - VOMITING [None]
